FAERS Safety Report 22610313 (Version 1)
Quarter: 2023Q2

REPORT INFORMATION
  Report Type: Spontaneous
  Country: NL (occurrence: NL)
  Receive Date: 20230616
  Receipt Date: 20230616
  Transmission Date: 20230722
  Serious: Yes (Hospitalization)
  Sender: FDA-Public Use
  Company Number: None

PATIENT
  Sex: Female
  Weight: 91 kg

DRUGS (3)
  1. PACLITAXEL [Suspect]
     Active Substance: PACLITAXEL
     Indication: Breast cancer
     Dosage: 132 MG/DAY IN LAST WEEK, 168 MG 4 WK BEFORE, INFUUS / BRAND NAME NOT SPECIFIED
     Route: 065
     Dates: start: 20230413, end: 20230522
  2. RIVAROXABAN [Concomitant]
     Active Substance: RIVAROXABAN
     Indication: Product used for unknown indication
     Dosage: 15 MG (MILLIGRAM), / BRAND NAME NOT SPECIFIED
     Route: 065
  3. LIDOCAINE\PRILOCAINE [Concomitant]
     Active Substance: LIDOCAINE\PRILOCAINE
     Indication: Product used for unknown indication
     Dosage: 25/25 MG/G (MILLIGRAM PER GRAM), STRENGTH : 25/25MG/G / BRAND NAME NOT SPECIFIED
     Route: 065

REACTIONS (1)
  - Pneumonitis [Recovering/Resolving]
